FAERS Safety Report 20207826 (Version 1)
Quarter: 2021Q4

REPORT INFORMATION
  Report Type: Spontaneous
  Country: IT (occurrence: IT)
  Receive Date: 20211220
  Receipt Date: 20211220
  Transmission Date: 20220303
  Serious: Yes (Death, Life-Threatening, Hospitalization, Other)
  Sender: FDA-Public Use
  Company Number: US-CELGENE-ITA-20210904441

PATIENT
  Age: 73 Year
  Sex: Female

DRUGS (34)
  1. AZACITIDINE [Suspect]
     Active Substance: AZACITIDINE
     Indication: Acute myeloid leukaemia
     Dosage: UNK
     Route: 065
     Dates: start: 20210726
  2. AZACITIDINE [Suspect]
     Active Substance: AZACITIDINE
     Indication: Product used for unknown indication
     Dosage: 70 MILLIGRAM
     Route: 048
     Dates: start: 20210729
  3. AZACITIDINE [Suspect]
     Active Substance: AZACITIDINE
     Dosage: 70 MILLIGRAM
     Route: 048
     Dates: start: 20210806
  4. AZACITIDINE [Suspect]
     Active Substance: AZACITIDINE
     Dosage: 75 MILLIGRAM/SQ. METER
     Route: 048
     Dates: start: 20210823
  5. AZACITIDINE [Suspect]
     Active Substance: AZACITIDINE
     Dosage: 200 MILLIGRAM
     Route: 048
     Dates: start: 20210811
  6. AZACITIDINE [Suspect]
     Active Substance: AZACITIDINE
     Dosage: 400 MILLIGRAM
     Route: 048
     Dates: start: 20210810
  7. AZACITIDINE [Suspect]
     Active Substance: AZACITIDINE
     Dosage: 50 MILLIGRAM
     Route: 048
     Dates: start: 20210728
  8. AZACITIDINE [Suspect]
     Active Substance: AZACITIDINE
     Dosage: 200 MILLIGRAM
     Route: 048
     Dates: start: 20210823
  9. AZACITIDINE [Suspect]
     Active Substance: AZACITIDINE
     Dosage: 400 MILLIGRAM
     Route: 048
     Dates: start: 20210807
  10. AZACITIDINE [Suspect]
     Active Substance: AZACITIDINE
     Dosage: 20 MILLIGRAM
     Route: 048
     Dates: start: 20210727
  11. VENETOCLAX [Suspect]
     Active Substance: VENETOCLAX
     Indication: Product used for unknown indication
     Dosage: 20 MILLIGRAM
     Route: 048
     Dates: start: 20210727
  12. VENETOCLAX [Suspect]
     Active Substance: VENETOCLAX
     Dosage: 200 MILLIGRAM
     Route: 048
     Dates: start: 20210811
  13. VENETOCLAX [Suspect]
     Active Substance: VENETOCLAX
     Dosage: 400 MILLIGRAM
     Route: 048
     Dates: start: 20210810
  14. VENETOCLAX [Suspect]
     Active Substance: VENETOCLAX
     Dosage: 70 MILLIGRAM
     Route: 048
     Dates: start: 20210806
  15. VENETOCLAX [Suspect]
     Active Substance: VENETOCLAX
     Dosage: 70 MILLIGRAM
     Route: 048
     Dates: start: 20210729
  16. VENETOCLAX [Suspect]
     Active Substance: VENETOCLAX
     Dosage: 50 MILLIGRAM
     Route: 048
     Dates: start: 20210728
  17. VENETOCLAX [Suspect]
     Active Substance: VENETOCLAX
     Dosage: 75 MILLIGRAM/SQ. METER
     Route: 048
     Dates: start: 20210823
  18. VENETOCLAX [Suspect]
     Active Substance: VENETOCLAX
     Dosage: 200 MILLIGRAM
     Route: 048
     Dates: start: 20210823
  19. VENETOCLAX [Suspect]
     Active Substance: VENETOCLAX
     Dosage: 400 MILLIGRAM
     Route: 048
     Dates: start: 20210807
  20. VENETOCLAX [Suspect]
     Active Substance: VENETOCLAX
     Indication: Acute myeloid leukaemia
     Dosage: UNK
     Route: 065
     Dates: start: 20210726
  21. PEVONEDISTAT [Suspect]
     Active Substance: PEVONEDISTAT
     Indication: Acute myeloid leukaemia
     Dosage: UNK
     Route: 065
     Dates: start: 20210726
  22. ALLOPURINOL [Concomitant]
     Active Substance: ALLOPURINOL
     Indication: Prophylaxis
     Dosage: UNK
     Route: 065
     Dates: start: 202101
  23. CIPROFLOXACIN [Concomitant]
     Active Substance: CIPROFLOXACIN
     Indication: Pneumonia
     Dosage: UNK
     Route: 065
     Dates: start: 20210804, end: 20210818
  24. ISAVUCONAZOLE [Concomitant]
     Active Substance: ISAVUCONAZOLE
     Indication: Pneumonia
     Dosage: UNK
     Route: 065
     Dates: start: 20210818
  25. ANTITHROMBIN III HUMAN [Concomitant]
     Active Substance: ANTITHROMBIN III HUMAN
     Indication: International normalised ratio increased
     Dosage: UNK
     Route: 065
     Dates: start: 20210823, end: 20210823
  26. DEFERASIROX [Concomitant]
     Active Substance: DEFERASIROX
     Indication: Prophylaxis
     Dosage: UNK
     Route: 065
     Dates: start: 202103
  27. AMBISOME [Concomitant]
     Active Substance: AMPHOTERICIN B
     Dosage: UNK
     Route: 065
     Dates: start: 20210804, end: 20210818
  28. CHLORPHENIRAMINE MALEATE [Concomitant]
     Active Substance: CHLORPHENIRAMINE MALEATE
     Indication: Premedication
     Dosage: UNK
     Route: 065
     Dates: start: 20210804, end: 20210818
  29. METOCLOPRAMIDE [Concomitant]
     Active Substance: METOCLOPRAMIDE
     Indication: Prophylaxis of nausea and vomiting
     Dosage: UNK
     Route: 065
     Dates: start: 20210809
  30. LINEZOLID [Concomitant]
     Active Substance: LINEZOLID
     Indication: Product used for unknown indication
     Dosage: UNK
     Route: 065
     Dates: start: 20210730
  31. OMEPRAZOLE [Concomitant]
     Active Substance: OMEPRAZOLE
     Indication: Gastric ulcer
     Dosage: UNK
     Route: 065
     Dates: start: 20210727
  32. CEFTOBIPROLE [Concomitant]
     Active Substance: CEFTOBIPROLE
     Indication: Product used for unknown indication
     Dosage: UNK
     Route: 065
     Dates: start: 20210804, end: 20210816
  33. VITAMIN K [Concomitant]
     Active Substance: PHYTONADIONE
     Indication: Prophylaxis
     Dosage: UNK
     Route: 065
     Dates: start: 20210823
  34. MENADIONE [Suspect]
     Active Substance: MENADIONE
     Indication: Prophylaxis
     Dosage: UNK
     Dates: start: 20210823

REACTIONS (1)
  - Pneumonia [Fatal]

NARRATIVE: CASE EVENT DATE: 20210907
